FAERS Safety Report 7802805-3 (Version None)
Quarter: 2011Q4

REPORT INFORMATION
  Report Type: 
  Country: None (occurrence: None)
  Receive Date: 20111007
  Receipt Date: 20110916
  Transmission Date: 20120403
  Serious: Yes (Hospitalization)
  Sender: FDA-Public Use
  Company Number: AU-PFIZER INC-2011239170

PATIENT
  Age: 85 Year
  Sex: Male

DRUGS (2)
  1. PRISTIQ [Suspect]
     Dosage: UNK
  2. WARFARIN [Concomitant]
     Dosage: UNK

REACTIONS (2)
  - FALL [None]
  - INTERNATIONAL NORMALISED RATIO INCREASED [None]
